FAERS Safety Report 10239277 (Version 1)
Quarter: 2014Q2

REPORT INFORMATION
  Report Type: Report from Study
  Country: US (occurrence: US)
  Receive Date: 20140616
  Receipt Date: 20140616
  Transmission Date: 20141212
  Serious: No
  Sender: FDA-Public Use
  Company Number: US-ABBVIE-14P-163-1209807-00

PATIENT
  Sex: Female

DRUGS (2)
  1. LUPANETA PACK [Suspect]
     Indication: ENDOMETRIOSIS
     Dates: end: 20131221
  2. LUPANETA PACK [Suspect]
     Indication: PRODUCT USED FOR UNKNOWN INDICATION

REACTIONS (3)
  - Abdominal pain [Recovering/Resolving]
  - Hot flush [Unknown]
  - Migraine [Unknown]
